FAERS Safety Report 10163181 (Version 1)
Quarter: 2014Q2

REPORT INFORMATION
  Report Type: Spontaneous
  Country: JP (occurrence: JP)
  Receive Date: 20140509
  Receipt Date: 20140509
  Transmission Date: 20141212
  Serious: Yes (Hospitalization)
  Sender: FDA-Public Use
  Company Number: JP-GLAXOSMITHKLINE-B0992056A

PATIENT
  Age: 15 Year
  Sex: Male

DRUGS (1)
  1. VOTRIENT 200MG [Suspect]
     Indication: PERIPHERAL NERVE SHEATH TUMOUR MALIGNANT
     Dosage: 600MG PER DAY
     Route: 048
     Dates: start: 20140412, end: 20140425

REACTIONS (5)
  - Disseminated intravascular coagulation [Recovered/Resolved]
  - Hypertension [Recovered/Resolved]
  - Diarrhoea [Recovered/Resolved]
  - Proteinuria [Recovered/Resolved]
  - Hypothyroidism [Recovered/Resolved]
